FAERS Safety Report 6896430-9 (Version None)
Quarter: 2010Q3

REPORT INFORMATION
  Report Type: 
  Country: None (occurrence: None)
  Receive Date: 20100727
  Receipt Date: 20100721
  Transmission Date: 20110219
  Serious: Yes (Hospitalization)
  Sender: FDA-Public Use
  Company Number: FR-MERCK-1007FRA00100

PATIENT
  Age: 87 Year
  Sex: Female

DRUGS (7)
  1. COZAAR [Suspect]
     Indication: HYPERTENSION
     Route: 048
     Dates: start: 20000101, end: 20080101
  2. COZAAR [Suspect]
     Route: 048
     Dates: start: 20080101, end: 20100701
  3. COZAAR [Suspect]
     Route: 048
     Dates: start: 20100701
  4. ACENOCOUMAROL [Concomitant]
     Route: 048
  5. BUMETANIDE [Concomitant]
     Route: 048
     Dates: end: 20100601
  6. DIGOXIN [Concomitant]
     Route: 048
  7. AMIODARONE HYDROCHLORIDE [Concomitant]
     Route: 048

REACTIONS (4)
  - OEDEMA PERIPHERAL [None]
  - OVERDOSE [None]
  - SKIN LESION [None]
  - WOUND SECRETION [None]
